FAERS Safety Report 24936331 (Version 1)
Quarter: 2025Q1

REPORT INFORMATION
  Report Type: Report from Study
  Country: US (occurrence: US)
  Receive Date: 20250206
  Receipt Date: 20250206
  Transmission Date: 20250409
  Serious: Yes (Other)
  Sender: EXELIXIS
  Company Number: US-EXELIXIS-EXL-2024-002600

PATIENT
  Sex: Female

DRUGS (18)
  1. CABOMETYX [Suspect]
     Active Substance: CABOZANTINIB S-MALATE
     Indication: Adrenal gland cancer
     Dosage: 40 MG, QD
     Dates: start: 20241011
  2. CABOMETYX [Suspect]
     Active Substance: CABOZANTINIB S-MALATE
     Indication: Bone cancer
  3. CABOMETYX [Suspect]
     Active Substance: CABOZANTINIB S-MALATE
     Indication: Chondrosarcoma
  4. PREGABALIN [Concomitant]
     Active Substance: PREGABALIN
  5. BACLOFEN [Concomitant]
     Active Substance: BACLOFEN
  6. OXYCODONE [Concomitant]
     Active Substance: OXYCODONE
  7. HYDROXYZINE PAMOATE [Concomitant]
     Active Substance: HYDROXYZINE PAMOATE
  8. BUPROPION [Concomitant]
     Active Substance: BUPROPION
  9. FAMOTIDINE [Concomitant]
     Active Substance: FAMOTIDINE
  10. OLANZAPINE [Concomitant]
     Active Substance: OLANZAPINE
  11. FENTANYL [Concomitant]
     Active Substance: FENTANYL
  12. SENNA [Concomitant]
     Active Substance: SENNOSIDES
  13. ATORVASTATIN [Concomitant]
     Active Substance: ATORVASTATIN
  14. ESCITALOPRAM [Concomitant]
     Active Substance: ESCITALOPRAM OXALATE
  15. LEVOTHYROXINE [Concomitant]
     Active Substance: LEVOTHYROXINE
  16. HYDROCORTISONE [Concomitant]
     Active Substance: HYDROCORTISONE
  17. LISINOPRIL [Concomitant]
     Active Substance: LISINOPRIL
  18. TYLENOL [Concomitant]
     Active Substance: ACETAMINOPHEN

REACTIONS (16)
  - Red blood cell count decreased [Not Recovered/Not Resolved]
  - Stomatitis [Recovered/Resolved]
  - Weight decreased [Recovered/Resolved]
  - Rash [Not Recovered/Not Resolved]
  - Fatigue [Not Recovered/Not Resolved]
  - Constipation [Recovered/Resolved]
  - Blood magnesium decreased [Not Recovered/Not Resolved]
  - Taste disorder [Not Recovered/Not Resolved]
  - Decreased appetite [Recovering/Resolving]
  - Noninfective gingivitis [Recovered/Resolved]
  - Cheilitis [Recovered/Resolved]
  - Hypoaesthesia [Not Recovered/Not Resolved]
  - Hypophagia [Not Recovered/Not Resolved]
  - Mass [Unknown]
  - Dry mouth [Not Recovered/Not Resolved]
  - Off label use [Unknown]
